FAERS Safety Report 7232125-X (Version None)
Quarter: 2011Q1

REPORT INFORMATION
  Report Type: 
  Country: None (occurrence: None)
  Receive Date: 20110119
  Receipt Date: 20110107
  Transmission Date: 20110831
  Serious: Yes (Hospitalization)
  Sender: FDA-Public Use
  Company Number: US-BIOGENIDEC-2010BI044681

PATIENT
  Age: 45 Year
  Sex: Female

DRUGS (1)
  1. TYSABRI [Suspect]
     Indication: MULTIPLE SCLEROSIS
     Route: 042
     Dates: start: 20101210

REACTIONS (6)
  - HAEMATOCHEZIA [None]
  - MULTIPLE SCLEROSIS [None]
  - CRYING [None]
  - FATIGUE [None]
  - NAUSEA [None]
  - DEPRESSED MOOD [None]
